FAERS Safety Report 5277668-3 (Version None)
Quarter: 2007Q1

REPORT INFORMATION
  Report Type: 
  Country: None (occurrence: None)
  Receive Date: 20070320
  Receipt Date: 20070307
  Transmission Date: 20070707
  Serious: Yes (Other)
  Sender: FDA-Public Use
  Company Number: CHPA2006US12273

PATIENT
  Age: 32 Year
  Sex: Female
  Weight: 61.2 kg

DRUGS (1)
  1. TRANSDERM SCOP [Suspect]
     Indication: MOTION SICKNESS
     Dosage: 1.5 MG, TRANSDERMAL
     Route: 062
     Dates: start: 20061123, end: 20061123

REACTIONS (11)
  - AMNESIA [None]
  - APHASIA [None]
  - DIZZINESS [None]
  - FEAR [None]
  - GAIT DISTURBANCE [None]
  - GLOSSODYNIA [None]
  - LOSS OF CONSCIOUSNESS [None]
  - MYALGIA [None]
  - PARTIAL SEIZURES [None]
  - TONGUE BITING [None]
  - UNRESPONSIVE TO STIMULI [None]
